FAERS Safety Report 16314034 (Version 3)
Quarter: 2020Q1

REPORT INFORMATION
  Report Type: Spontaneous
  Country: US (occurrence: US)
  Receive Date: 20190515
  Receipt Date: 20200205
  Transmission Date: 20200409
  Serious: No
  Sender: FDA-Public Use
  Company Number: US-PFIZER INC-2019198254

PATIENT
  Age: 64 Year
  Sex: Male

DRUGS (2)
  1. CAVERJECT IMPULSE [Suspect]
     Active Substance: ALPROSTADIL
     Dosage: UNK
  2. CAVERJECT IMPULSE [Suspect]
     Active Substance: ALPROSTADIL
     Dosage: 20 UG, SINGLE

REACTIONS (5)
  - Drug ineffective [Unknown]
  - Device issue [Unknown]
  - Device use issue [Unknown]
  - Product packaging issue [Unknown]
  - Expired product administered [Unknown]
